FAERS Safety Report 6074571-6 (Version None)
Quarter: 2009Q1

REPORT INFORMATION
  Report Type: 
  Country: None (occurrence: None)
  Receive Date: 20090206
  Receipt Date: 20090128
  Transmission Date: 20090719
  Serious: Yes (Other)
  Sender: FDA-Public Use
  Company Number: 2008AP003166

PATIENT
  Age: 44 Year
  Sex: Male

DRUGS (3)
  1. LITHIUM CARBONATE [Suspect]
     Indication: BIPOLAR DISORDER
     Dosage: 300 MG;TID;PO
     Route: 048
     Dates: start: 19940223
  2. QUETIAPINE FUMARATE [Concomitant]
  3. GABAPENTIN [Concomitant]

REACTIONS (6)
  - EATING DISORDER [None]
  - GINGIVAL BLEEDING [None]
  - TEETH BRITTLE [None]
  - TOOTH FRACTURE [None]
  - TOOTH LOSS [None]
  - TOOTHACHE [None]
